FAERS Safety Report 25430785 (Version 1)
Quarter: 2025Q2

REPORT INFORMATION
  Report Type: Report from Study
  Country: CA (occurrence: CA)
  Receive Date: 20250612
  Receipt Date: 20250612
  Transmission Date: 20250717
  Serious: Yes (Death, Hospitalization, Other)
  Sender: TEVA
  Company Number: CA-TEVA-VS-3339940

PATIENT
  Age: 45 Year
  Sex: Male

DRUGS (1)
  1. ZOLEDRONIC ACID [Suspect]
     Active Substance: ZOLEDRONIC ACID
     Indication: Osteoporosis
     Dosage: DOSE FORM:SOLUTION INTRAVENOUS, INJECTION
     Route: 065

REACTIONS (6)
  - Death [Fatal]
  - Sinus disorder [Fatal]
  - Ear, nose and throat disorder [Fatal]
  - Gastrointestinal disorder [Fatal]
  - Malaise [Fatal]
  - Nasopharyngitis [Fatal]
